FAERS Safety Report 10021620 (Version 4)
Quarter: 2014Q2

REPORT INFORMATION
  Report Type: Report from Study
  Country: NL (occurrence: NL)
  Receive Date: 20140319
  Receipt Date: 20140605
  Transmission Date: 20141212
  Serious: Yes (Other)
  Sender: FDA-Public Use
  Company Number: NL-BAXTER-2014BAX011781

PATIENT
  Sex: Male

DRUGS (6)
  1. KIOVIG, 100 MG/ML, OPLOSSING VOOR INFUSIE  (30 G/300 ML) [Suspect]
     Indication: NEUROPATHY PERIPHERAL
     Dosage: 1 X PER 2 WEEKS
     Route: 042
     Dates: start: 20121217, end: 20121217
  2. KIOVIG, 100 MG/ML, OPLOSSING VOOR INFUSIE  (30 G/300 ML) [Suspect]
     Indication: OFF LABEL USE
     Dosage: 1 X PER 2 WEEKS
     Route: 042
     Dates: start: 20140213, end: 20140213
  3. KIOVIG, 100 MG/ML, OPLOSSING VOOR INFUSIE  (30 G/300 ML) [Suspect]
     Dosage: 1 X PER 2 WEEKS
     Route: 042
     Dates: start: 20140227, end: 20140227
  4. KIOVIG 100 MG/ML OPLOSSING VOOR INFUSIE (5 G/50 ML) [Suspect]
     Indication: NEUROPATHY PERIPHERAL
     Dosage: 1 X PER 2 WEEKS
     Route: 042
     Dates: start: 20140227, end: 20140227
  5. KIOVIG 100 MG/ML OPLOSSING VOOR INFUSIE (5 G/50 ML) [Suspect]
     Indication: OFF LABEL USE
     Dosage: 1 X PER 2 WEEKS
     Route: 042
     Dates: start: 20140213, end: 20140213
  6. KIOVIG 100 MG/ML OPLOSSING VOOR INFUSIE (5 G/50 ML) [Suspect]
     Dosage: 1 X PER 2 WEEKS
     Route: 042
     Dates: start: 20121217, end: 20121217

REACTIONS (1)
  - Drug effect incomplete [Not Recovered/Not Resolved]
